FAERS Safety Report 9221935 (Version 1)
Quarter: 2013Q1

REPORT INFORMATION
  Report Type: Spontaneous
  Country: US (occurrence: None)
  Receive Date: 20120910
  Receipt Date: 20120910
  Transmission Date: 20140127
  Serious: No
  Sender: FDA-Public Use
  Company Number: 1205USA02772

PATIENT
  Age: 86 Year
  Sex: Female

DRUGS (1)
  1. ZIOPTAN (TAFLUPROST) EYE DROPS, SOLUTION, 0.0015% [Suspect]
     Indication: GLAUCOMA
     Dosage: 0.0015MG ONE DROP IN EACH EYE
     Route: 047
     Dates: start: 20120501

REACTIONS (2)
  - Eye pruritus [None]
  - Eye irritation [None]
